FAERS Safety Report 14860107 (Version 1)
Quarter: 2018Q2

REPORT INFORMATION
  Report Type: Spontaneous
  Country: CN (occurrence: CN)
  Receive Date: 20180508
  Receipt Date: 20180508
  Transmission Date: 20180711
  Serious: Yes (Other)
  Sender: FDA-Public Use
  Company Number: CN-PFIZER INC-2018184709

PATIENT
  Age: 7 Month
  Sex: Male
  Weight: 7 kg

DRUGS (2)
  1. SOLU-MEDROL [Suspect]
     Active Substance: METHYLPREDNISOLONE SODIUM SUCCINATE
     Dosage: 14 MG, 1X/DAY 14MG + (4:1) GLUCOSE SODIUM CHLORIDE INJECTION 20ML QD
     Route: 041
     Dates: start: 20180314, end: 20180314
  2. SOLU-MEDROL [Suspect]
     Active Substance: METHYLPREDNISOLONE SODIUM SUCCINATE
     Indication: PNEUMONIA
     Dosage: 14 MG, 2X/DAY 14MG + (4:1) GLUCOSE SODIUM CHLORIDE INJECTION 20ML Q12H
     Route: 041
     Dates: start: 20180312, end: 20180314

REACTIONS (1)
  - Upper gastrointestinal haemorrhage [Recovered/Resolved]

NARRATIVE: CASE EVENT DATE: 20180314
